FAERS Safety Report 15017734 (Version 2)
Quarter: 2018Q3

REPORT INFORMATION
  Report Type: Spontaneous
  Country: NO (occurrence: NO)
  Receive Date: 20180615
  Receipt Date: 20180827
  Transmission Date: 20181010
  Serious: Yes (Hospitalization, Other)
  Sender: FDA-Public Use
  Company Number: NO-PFIZER INC-2018240423

PATIENT
  Age: 64 Year
  Sex: Male

DRUGS (3)
  1. XALKORI [Suspect]
     Active Substance: CRIZOTINIB
     Indication: LUNG NEOPLASM MALIGNANT
     Dosage: 250 MG, 2X/DAY
     Route: 048
     Dates: start: 201802, end: 201803
  2. CERITINIB [Suspect]
     Active Substance: CERITINIB
     Indication: LUNG NEOPLASM MALIGNANT
     Dosage: FOR ONE MONTH
     Dates: start: 201801, end: 201802
  3. CERITINIB [Suspect]
     Active Substance: CERITINIB
     Dosage: UNK
     Dates: start: 201803

REACTIONS (6)
  - Hepatic enzyme increased [Not Recovered/Not Resolved]
  - Weight decreased [Unknown]
  - Infection [Unknown]
  - Pneumonia [Unknown]
  - Abdominal pain [Not Recovered/Not Resolved]
  - Subileus [Unknown]

NARRATIVE: CASE EVENT DATE: 201802
